FAERS Safety Report 18409349 (Version 1)
Quarter: 2020Q4

REPORT INFORMATION
  Report Type: Spontaneous
  Country: US (occurrence: US)
  Receive Date: 20201021
  Receipt Date: 20201021
  Transmission Date: 20210114
  Serious: Yes (Other)
  Sender: FDA-Public Use
  Company Number: US-SA-2020SA282666

PATIENT

DRUGS (1)
  1. CLOFARABINE. [Suspect]
     Active Substance: CLOFARABINE
     Indication: ROSAI-DORFMAN SYNDROME
     Dosage: UNK, QCY

REACTIONS (2)
  - Off label use [Recovering/Resolving]
  - Myelodysplastic syndrome [Recovering/Resolving]
